FAERS Safety Report 22850088 (Version 5)
Quarter: 2024Q1

REPORT INFORMATION
  Report Type: Report from Study
  Country: CA (occurrence: CA)
  Receive Date: 20230822
  Receipt Date: 20240304
  Transmission Date: 20240410
  Serious: Yes (Other)
  Sender: FDA-Public Use
  Company Number: CA-TAKEDA-CA202013919

PATIENT
  Sex: Female
  Weight: 50 kg

DRUGS (35)
  1. TEDUGLUTIDE [Suspect]
     Active Substance: TEDUGLUTIDE
     Indication: Short-bowel syndrome
     Dosage: 2.6 MILLIGRAM, QD
     Route: 065
     Dates: start: 20200415
  2. TEDUGLUTIDE [Suspect]
     Active Substance: TEDUGLUTIDE
     Indication: Short-bowel syndrome
     Dosage: 2.6 MILLIGRAM, QD
     Route: 065
     Dates: start: 20200415
  3. TEDUGLUTIDE [Suspect]
     Active Substance: TEDUGLUTIDE
     Indication: Short-bowel syndrome
     Dosage: 2.6 MILLIGRAM, QD
     Route: 065
     Dates: start: 20200415
  4. TEDUGLUTIDE [Suspect]
     Active Substance: TEDUGLUTIDE
     Indication: Short-bowel syndrome
     Dosage: 2.6 MILLIGRAM, QD
     Route: 065
     Dates: start: 20200415
  5. TEDUGLUTIDE [Suspect]
     Active Substance: TEDUGLUTIDE
     Dosage: UNK UNK, QD
     Route: 058
  6. TEDUGLUTIDE [Suspect]
     Active Substance: TEDUGLUTIDE
     Dosage: UNK UNK, QD
     Route: 058
  7. TEDUGLUTIDE [Suspect]
     Active Substance: TEDUGLUTIDE
     Dosage: UNK UNK, QD
     Route: 058
  8. TEDUGLUTIDE [Suspect]
     Active Substance: TEDUGLUTIDE
     Dosage: UNK UNK, QD
     Route: 058
  9. TEDUGLUTIDE [Suspect]
     Active Substance: TEDUGLUTIDE
     Dosage: 2.25 MILLIGRAM, QD
     Route: 058
  10. TEDUGLUTIDE [Suspect]
     Active Substance: TEDUGLUTIDE
     Dosage: 2.25 MILLIGRAM, QD
     Route: 058
  11. TEDUGLUTIDE [Suspect]
     Active Substance: TEDUGLUTIDE
     Dosage: 2.25 MILLIGRAM, QD
     Route: 058
  12. TEDUGLUTIDE [Suspect]
     Active Substance: TEDUGLUTIDE
     Dosage: 2.25 MILLIGRAM, QD
     Route: 058
  13. TEDUGLUTIDE [Suspect]
     Active Substance: TEDUGLUTIDE
     Dosage: 2.6 MILLIGRAM, QD
     Route: 065
     Dates: start: 20200420
  14. TEDUGLUTIDE [Suspect]
     Active Substance: TEDUGLUTIDE
     Dosage: 2.6 MILLIGRAM, QD
     Route: 065
     Dates: start: 20200420
  15. TEDUGLUTIDE [Suspect]
     Active Substance: TEDUGLUTIDE
     Dosage: 2.6 MILLIGRAM, QD
     Route: 065
     Dates: start: 20200420
  16. TEDUGLUTIDE [Suspect]
     Active Substance: TEDUGLUTIDE
     Dosage: 2.6 MILLIGRAM, QD
     Route: 065
     Dates: start: 20200420
  17. COVID-19 VACCINE NOS [Suspect]
     Active Substance: COVID-19 VACCINE NOS
     Indication: COVID-19 prophylaxis
     Dosage: UNK
     Route: 065
  18. VENOXIL [Concomitant]
     Dosage: UNK UNK, QD
     Route: 065
  19. IMODIUM [Concomitant]
     Active Substance: LOPERAMIDE HYDROCHLORIDE
     Dosage: UNK, TID
     Route: 065
  20. IMODIUM [Concomitant]
     Active Substance: LOPERAMIDE HYDROCHLORIDE
     Dosage: 3 DOSAGE FORM, BID
     Route: 065
     Dates: start: 20200424
  21. PANTOPRAZOLE SODIUM [Concomitant]
     Active Substance: PANTOPRAZOLE SODIUM
     Dosage: 40 MILLIGRAM, BID
     Route: 065
  22. VITAMIN A [Concomitant]
     Active Substance: VITAMIN A
     Dosage: UNK UNK, QD
     Route: 065
  23. VITAMIN E [Concomitant]
     Active Substance: .ALPHA.-TOCOPHEROL
     Dosage: 1 DOSAGE FORM, BID
     Route: 065
  24. VITAMIN D [Concomitant]
     Active Substance: VITAMIN D NOS
     Dosage: 10000 INTERNATIONAL UNIT, QD
     Route: 065
  25. ROCALTROL [Concomitant]
     Active Substance: CALCITRIOL
     Dosage: 0.25 MILLIGRAM, BID
     Route: 065
  26. ROCALTROL [Concomitant]
     Active Substance: CALCITRIOL
     Dosage: 50 MILLIGRAM, BID
     Route: 065
  27. CALCITRIOL [Concomitant]
     Active Substance: CALCITRIOL
     Dosage: UNK, QD
     Route: 065
  28. INSULIN NOS [Concomitant]
     Active Substance: INSULIN NOS
     Dosage: 12 INTERNATIONAL UNIT
     Route: 065
  29. CLINDAMYCIN [Concomitant]
     Active Substance: CLINDAMYCIN
     Dosage: 900 MILLIGRAM, BID
     Route: 042
  30. GRAVOL [Concomitant]
     Active Substance: DIMENHYDRINATE
     Dosage: UNK
     Route: 065
  31. FENTANYL [Concomitant]
     Active Substance: FENTANYL\FENTANYL CITRATE
     Indication: Back pain
     Dosage: 37 MICROGRAM
     Route: 065
  32. FENTANYL [Concomitant]
     Active Substance: FENTANYL\FENTANYL CITRATE
     Indication: Flatulence
  33. DULOXETINE [Concomitant]
     Active Substance: DULOXETINE
     Indication: Back pain
     Dosage: 30 MILLIGRAM, QD
     Route: 065
  34. MIRTAZAPINE [Concomitant]
     Active Substance: MIRTAZAPINE
     Indication: Back pain
     Dosage: 15 MILLIGRAM
     Route: 048
  35. MIRTAZAPINE [Concomitant]
     Active Substance: MIRTAZAPINE
     Indication: Flatulence

REACTIONS (24)
  - Nephrolithiasis [Not Recovered/Not Resolved]
  - Fatigue [Recovered/Resolved]
  - Urine output increased [Unknown]
  - Faecal volume increased [Unknown]
  - Back pain [Recovered/Resolved]
  - Night sweats [Unknown]
  - Blood glucose decreased [Unknown]
  - Palpitations [Unknown]
  - Swelling [Recovering/Resolving]
  - Diarrhoea [Not Recovered/Not Resolved]
  - Memory impairment [Unknown]
  - Vitamin D decreased [Unknown]
  - Weight decreased [Unknown]
  - Illness [Unknown]
  - Insomnia [Recovering/Resolving]
  - Flatulence [Recovering/Resolving]
  - Abdominal distension [Unknown]
  - Dyspnoea [Recovered/Resolved]
  - Vomiting [Unknown]
  - Oedema peripheral [Recovered/Resolved]
  - Abdominal pain [Recovered/Resolved]
  - Weight increased [Unknown]
  - Product dose omission in error [Unknown]
  - Product dose omission issue [Unknown]

NARRATIVE: CASE EVENT DATE: 20200101
